FAERS Safety Report 26126640 (Version 1)
Quarter: 2025Q4

REPORT INFORMATION
  Report Type: Spontaneous
  Country: CN (occurrence: CN)
  Receive Date: 20251205
  Receipt Date: 20251205
  Transmission Date: 20260118
  Serious: Yes (Disabling)
  Sender: EISAI
  Company Number: CN-Eisai-EC-2025-201406

PATIENT
  Age: 48 Year
  Sex: Female
  Weight: 46 kg

DRUGS (3)
  1. LENVATINIB [Suspect]
     Active Substance: LENVATINIB
     Indication: Breast cancer
     Route: 048
     Dates: start: 20251031
  2. TORIPALIMAB [Suspect]
     Active Substance: TORIPALIMAB
     Indication: Breast cancer
     Dosage: FREQUENCY UNKNOWN
     Route: 041
  3. SACITUZUMAB TIRUMOTECAN [Suspect]
     Active Substance: SACITUZUMAB TIRUMOTECAN
     Indication: Breast cancer
     Dosage: FREQUENCY UNKNOWN
     Route: 041

REACTIONS (1)
  - Myelosuppression [Recovering/Resolving]

NARRATIVE: CASE EVENT DATE: 20251116
